FAERS Safety Report 13900248 (Version 1)
Quarter: 2017Q3

REPORT INFORMATION
  Report Type: Spontaneous
  Country: CA (occurrence: None)
  Receive Date: 20170818
  Receipt Date: 20170818
  Transmission Date: 20171127
  Serious: Yes (Hospitalization)
  Sender: FDA-Public Use
  Company Number: None

PATIENT
  Age: 69 Year
  Sex: Female
  Weight: 93.3 kg

DRUGS (2)
  1. DOXORUBICIN HYDROCHLORIDE. [Suspect]
     Active Substance: DOXORUBICIN HYDROCHLORIDE
     Dates: end: 20170803
  2. CYCLOPHOSPHAMIDE. [Suspect]
     Active Substance: CYCLOPHOSPHAMIDE
     Dates: end: 20170803

REACTIONS (14)
  - Cough [None]
  - Oedema peripheral [None]
  - Oral pain [None]
  - Decreased appetite [None]
  - Weight decreased [None]
  - Peripheral coldness [None]
  - Fatigue [None]
  - Pulmonary embolism [None]
  - Skin irritation [None]
  - Blood lactate dehydrogenase increased [None]
  - Peripheral swelling [None]
  - Deep vein thrombosis [None]
  - Pain in extremity [None]
  - Dysgeusia [None]

NARRATIVE: CASE EVENT DATE: 20170807
